FAERS Safety Report 8028351 (Version 4)
Quarter: 2013Q4

REPORT INFORMATION
  Report Type: Spontaneous
  Country: JP (occurrence: JP)
  Receive Date: 20110711
  Receipt Date: 20131219
  Transmission Date: 20140711
  Serious: Yes (Hospitalization, Other)
  Sender: FDA-Public Use
  Company Number: JP-NOVOPROD-330136

PATIENT
  Age: 74 Year
  Sex: Female
  Weight: 56 kg

DRUGS (22)
  1. NOVORAPID CHU FLEXPEN [Suspect]
     Indication: TYPE 2 DIABETES MELLITUS
     Dosage: 28 U, QD
     Route: 058
     Dates: start: 2004, end: 20100812
  2. LANTUS SOLOSTAR [Suspect]
     Indication: TYPE 2 DIABETES MELLITUS
     Dosage: 10 IU, QD
     Route: 058
  3. ALESION [Concomitant]
     Indication: PUSTULAR PSORIASIS
     Dosage: 20 MG, QD
     Route: 048
  4. ALLELOCK [Concomitant]
     Indication: PUSTULAR PSORIASIS
     Dosage: 10 MG, QD
     Route: 048
  5. ONON [Concomitant]
     Indication: ASTHMA
     Dosage: 450 MG, QD
     Route: 048
  6. CLARITH [Concomitant]
     Dosage: 400 MG, QD
     Route: 048
  7. SIGMART [Concomitant]
     Indication: ASTHMA
     Dosage: 15 MG, QD
     Route: 048
  8. BAYASPIRIN [Concomitant]
     Indication: ANGINA PECTORIS
     Dosage: 100 MG, QD
     Route: 048
  9. PREDONINE                          /00016201/ [Concomitant]
     Indication: DERMATOMYOSITIS
     Dosage: 5 MG, QD
     Route: 048
  10. PREDNISOLONE [Concomitant]
     Indication: DERMATOMYOSITIS
     Dosage: 1 MG, QD
     Route: 048
  11. BEZATOL SR [Concomitant]
     Indication: HYPERLIPIDAEMIA
     Dosage: 400 MG, QD
     Route: 048
  12. MAGLAX [Concomitant]
     Indication: CONSTIPATION
     Dosage: 990 MG, QD
     Route: 048
  13. MUCOSTA [Concomitant]
     Indication: CHRONIC OBSTRUCTIVE PULMONARY DISEASE
     Dosage: 300 MG, QD
     Route: 048
  14. UNIPHYLLA [Concomitant]
     Indication: ASTHMA
     Dosage: 200 MG, QD
     Route: 048
  15. LASIX                              /00032601/ [Concomitant]
     Indication: CARDIAC FAILURE CHRONIC
     Dosage: 200 MG, QD
     Route: 048
  16. LOXOPROFEN [Concomitant]
     Indication: OSTEOARTHRITIS
     Dosage: 120 MG, QD
     Route: 048
  17. TIGASON                            /00530101/ [Concomitant]
     Indication: PUSTULAR PSORIASIS
     Dosage: 10 MG, QD
     Route: 048
  18. LANSOPRAZOLE [Concomitant]
     Indication: GASTRIC ULCER
     Dosage: 15 MG, QD
     Route: 048
  19. ROHYPNOL [Concomitant]
     Indication: INSOMNIA
     Dosage: 1 MG, QD
     Route: 048
  20. ZYLORIC [Concomitant]
     Indication: HYPERURICAEMIA
     Dosage: 100 MG, QD
     Route: 048
  21. SLOW-K [Concomitant]
     Indication: HYPOKALAEMIA
     Dosage: 600 MG, QD
     Route: 048
  22. FLUTIDE [Concomitant]
     Indication: ASTHMA
     Dosage: 400 ?G, QD
     Route: 055

REACTIONS (4)
  - Anti-insulin antibody positive [Recovering/Resolving]
  - Hyperinsulinaemia [Recovering/Resolving]
  - Hypoglycaemic unconsciousness [Recovering/Resolving]
  - Blood glucose fluctuation [Recovering/Resolving]
